FAERS Safety Report 6249608-1 (Version None)
Quarter: 2009Q2

REPORT INFORMATION
  Report Type: 
  Country: None (occurrence: None)
  Receive Date: 20090625
  Receipt Date: 20090625
  Transmission Date: 20091009
  Serious: Yes (Other)
  Sender: FDA-Public Use
  Company Number: None

PATIENT
  Age: 40 Year
  Sex: Female
  Weight: 52.1637 kg

DRUGS (1)
  1. KENALOG [Suspect]
     Indication: CHALAZION
     Dosage: ONCE INTRALESIONAL
     Route: 026
     Dates: start: 20090130, end: 20090130

REACTIONS (2)
  - ATROPHY [None]
  - EYELID DISORDER [None]
